FAERS Safety Report 5688081-9 (Version None)
Quarter: 2008Q1

REPORT INFORMATION
  Report Type: 
  Country: None (occurrence: None)
  Receive Date: 20080327
  Receipt Date: 20070523
  Transmission Date: 20080703
  Serious: Yes (Death, Hospitalization)
  Sender: FDA-Public Use
  Company Number: US082128

PATIENT
  Age: 42 Year
  Sex: Male

DRUGS (4)
  1. ETANERCEPT           (ETANERCEPT) [Suspect]
     Indication: PSORIASIS
     Dosage: 50 MG, 2 IN 1 WEEKS, SC
     Route: 058
     Dates: start: 20040524, end: 20040624
  2. TRIAMCINOLONE ACETONIDE [Suspect]
     Dosage: 80 MG, IM
     Route: 030
     Dates: start: 20040628
  3. PREDNISONE [Suspect]
     Dosage: 30 MG, 1 IN 1 DAYS, PO
     Route: 048
     Dates: start: 20040628
  4. KETOROLAC TROMETHAMINE [Concomitant]

REACTIONS (26)
  - ABDOMINAL PAIN [None]
  - ABSCESS [None]
  - ARTHRALGIA [None]
  - BLISTER [None]
  - BLOOD CULTURE POSITIVE [None]
  - BRONCHOSCOPY ABNORMAL [None]
  - DYSPNOEA EXERTIONAL [None]
  - HAEMOPTYSIS [None]
  - HEADACHE [None]
  - HYPOPERFUSION [None]
  - HYPOTENSION [None]
  - IMMUNOSUPPRESSION [None]
  - INFLUENZA LIKE ILLNESS [None]
  - LACTIC ACIDOSIS [None]
  - LARYNGEAL DISORDER [None]
  - LUNG INFILTRATION [None]
  - OLIGURIA [None]
  - PLEURITIC PAIN [None]
  - PNEUMONIA [None]
  - PSEUDOMONAS INFECTION [None]
  - SEPTIC SHOCK [None]
  - SINUS DISORDER [None]
  - SINUSITIS [None]
  - SPUTUM PURULENT [None]
  - STAPHYLOCOCCAL SEPSIS [None]
  - STREPTOCOCCAL SEPSIS [None]
